FAERS Safety Report 5091804-3 (Version None)
Quarter: 2006Q3

REPORT INFORMATION
  Report Type: 
  Country: None (occurrence: None)
  Receive Date: 20060829
  Receipt Date: 20060531
  Transmission Date: 20061208
  Serious: No
  Sender: FDA-Public Use
  Company Number: US-BRISTOL-MYERS SQUIBB COMPANY-13403837

PATIENT
  Age: 70 Year
  Sex: Female

DRUGS (3)
  1. MITOMYCIN [Suspect]
     Indication: PANCREATIC CARCINOMA
  2. ERBITUX [Suspect]
     Indication: PANCREATIC CARCINOMA
  3. IRINOTECAN HCL [Suspect]
     Indication: PANCREATIC CARCINOMA

REACTIONS (1)
  - SKIN BURNING SENSATION [None]
